FAERS Safety Report 17884117 (Version 1)
Quarter: 2020Q2

REPORT INFORMATION
  Report Type: Spontaneous
  Country: JP (occurrence: JP)
  Receive Date: 20200611
  Receipt Date: 20200611
  Transmission Date: 20200714
  Serious: Yes (Hospitalization)
  Sender: FDA-Public Use
  Company Number: JP-EISAI MEDICAL RESEARCH-EC-2020-075582

PATIENT
  Age: 69 Year
  Sex: Male
  Weight: 67 kg

DRUGS (3)
  1. RABEPRAZOLE [Suspect]
     Active Substance: RABEPRAZOLE
     Dates: start: 2015
  2. CILOSTAZOL. [Concomitant]
     Active Substance: CILOSTAZOL
     Indication: CEREBRAL INFARCTION
     Dosage: DOSE AND FREQUENCY NOT PROVIDED
     Dates: start: 201306
  3. RABEPRAZOLE [Suspect]
     Active Substance: RABEPRAZOLE
     Indication: PRODUCT USED FOR UNKNOWN INDICATION
     Route: 048
     Dates: start: 2012, end: 2015

REACTIONS (2)
  - Gastric polyps [Recovered/Resolved]
  - Blood gastrin increased [Unknown]

NARRATIVE: CASE EVENT DATE: 201304
